FAERS Safety Report 23478931 (Version 1)
Quarter: 2024Q1

REPORT INFORMATION
  Report Type: Report from Study
  Country: US (occurrence: US)
  Receive Date: 20240205
  Receipt Date: 20240205
  Transmission Date: 20240409
  Serious: No
  Sender: FDA-Public Use
  Company Number: US-EXELIXIS-CABO-23068450

PATIENT
  Sex: Male

DRUGS (1)
  1. CABOMETYX [Suspect]
     Active Substance: CABOZANTINIB S-MALATE
     Indication: Renal cancer
     Dosage: 60 MG, QD
     Dates: end: 20230915

REACTIONS (5)
  - Rash pruritic [Unknown]
  - Decreased appetite [Unknown]
  - Dysphonia [Unknown]
  - Fatigue [Unknown]
  - Throat irritation [Unknown]
